FAERS Safety Report 7543749-4 (Version None)
Quarter: 2011Q2

REPORT INFORMATION
  Report Type: 
  Country: None (occurrence: None)
  Receive Date: 20110613
  Receipt Date: 20040819
  Transmission Date: 20111010
  Serious: Yes (Hospitalization)
  Sender: FDA-Public Use
  Company Number: PHHO2004NL18743

PATIENT
  Sex: Male

DRUGS (3)
  1. DIOVAN [Suspect]
  2. BETA BLOCKING AGENTS [Concomitant]
  3. BUMETANIDE [Concomitant]

REACTIONS (2)
  - DIABETES MELLITUS [None]
  - ARTERIAL OCCLUSIVE DISEASE [None]
